FAERS Safety Report 25684107 (Version 2)
Quarter: 2025Q3

REPORT INFORMATION
  Report Type: Spontaneous
  Country: EU (occurrence: EU)
  Receive Date: 20250815
  Receipt Date: 20250826
  Transmission Date: 20251020
  Serious: Yes (Hospitalization, Other)
  Sender: ABBVIE
  Company Number: EU-MLMSERVICE-20250729-PI593981-00199-1

PATIENT
  Age: 19 Year
  Sex: Female

DRUGS (1)
  1. LEVONORGESTREL [Suspect]
     Active Substance: LEVONORGESTREL
     Indication: Post coital contraception
     Route: 015

REACTIONS (3)
  - Posterior reversible encephalopathy syndrome [Recovered/Resolved with Sequelae]
  - Inappropriate antidiuretic hormone secretion [Recovered/Resolved]
  - Porphyria acute [Recovered/Resolved]
